FAERS Safety Report 8362754-1 (Version None)
Quarter: 2012Q2

REPORT INFORMATION
  Report Type: 
  Country: None (occurrence: None)
  Receive Date: 20120516
  Receipt Date: 20120508
  Transmission Date: 20120825
  Serious: Yes (Other)
  Sender: FDA-Public Use
  Company Number: PHHY2012DK039879

PATIENT
  Sex: Male
  Weight: 15.2 kg

DRUGS (4)
  1. SINGULAIR [Concomitant]
     Indication: ASTHMA
  2. VENTOLIN [Concomitant]
     Indication: ASTHMA
     Dosage: DOSIS: 0,2 MG EFTER BEHOV, HVILKET HAN KUN FIK F? GANGE I PERIODEN.
  3. RITALIN [Suspect]
     Dosage: 10 MG, BID
     Route: 048
     Dates: start: 20111211, end: 20120119
  4. FLIXOTIDE DISKUS [Concomitant]
     Indication: ASTHMA

REACTIONS (9)
  - SOCIAL AVOIDANT BEHAVIOUR [None]
  - OTITIS MEDIA [None]
  - TIC [None]
  - HYPERHIDROSIS [None]
  - MOOD SWINGS [None]
  - AGGRESSION [None]
  - INSOMNIA [None]
  - DECREASED APPETITE [None]
  - MUSCLE RIGIDITY [None]
